FAERS Safety Report 4840771-3 (Version None)
Quarter: 2005Q4

REPORT INFORMATION
  Report Type: 
  Country: None (occurrence: None)
  Receive Date: 20051130
  Receipt Date: 20051115
  Transmission Date: 20060501
  Serious: Yes (Disabling)
  Sender: FDA-Public Use
  Company Number: 2005GB02248

PATIENT
  Age: 28397 Day
  Sex: Female
  Weight: 46.5 kg

DRUGS (6)
  1. ARIMIDEX [Suspect]
     Indication: BREAST CANCER
     Route: 048
  2. DOXAZOSIN [Concomitant]
     Indication: HYPERTENSION
     Route: 048
  3. COAPROVEL [Concomitant]
     Indication: HYPERTENSION
     Route: 048
  4. ASPIRIN [Concomitant]
     Indication: PROPHYLAXIS
     Route: 048
  5. SIMVASTATIN [Concomitant]
     Indication: HYPERCHOLESTEROLAEMIA
     Route: 048
  6. ACETAMINOPHEN [Concomitant]
     Route: 048

REACTIONS (1)
  - RETINAL VEIN OCCLUSION [None]
